FAERS Safety Report 8944770 (Version 2)
Quarter: 2013Q4

REPORT INFORMATION
  Report Type: Spontaneous
  Country: FR (occurrence: FR)
  Receive Date: 20121204
  Receipt Date: 20131015
  Transmission Date: 20140711
  Serious: Yes (Hospitalization)
  Sender: FDA-Public Use
  Company Number: FR-B.I. PHARMACEUTICALS,INC./RIDGEFIELD-2012-FF-01813FF

PATIENT
  Age: 76 Year
  Sex: Male

DRUGS (8)
  1. PRADAXA [Suspect]
     Indication: ATRIAL FLUTTER
     Dosage: 220 MG
     Route: 048
     Dates: start: 20121121, end: 20121127
  2. DELURSAN [Concomitant]
  3. LERCANIDIPINE [Concomitant]
  4. PERINDOPRIL [Concomitant]
  5. ZYLORIC [Concomitant]
  6. BISOCE [Concomitant]
  7. FUROSEMIDE [Concomitant]
  8. ROSUVASTATINE [Concomitant]

REACTIONS (3)
  - Cerebrovascular accident [Recovered/Resolved]
  - Drug ineffective [Recovered/Resolved]
  - Hemiplegia [Recovered/Resolved]
